FAERS Safety Report 8559740-5 (Version None)
Quarter: 2012Q3

REPORT INFORMATION
  Report Type: 
  Country: None (occurrence: None)
  Receive Date: 20120802
  Receipt Date: 20120730
  Transmission Date: 20120928
  Serious: Yes (Other)
  Sender: FDA-Public Use
  Company Number: US-PFIZER INC-2012185817

PATIENT
  Sex: Male
  Weight: 93.878 kg

DRUGS (3)
  1. ASPIRIN [Concomitant]
     Indication: MYOCARDIAL INFARCTION
     Dosage: 325 MG, DAILY
  2. VIAGRA [Suspect]
     Indication: ERECTILE DYSFUNCTION
     Dosage: 100 MG, AS NEEDED
     Dates: start: 20050101, end: 20120501
  3. PLAVIX [Concomitant]
     Indication: ANTICOAGULANT THERAPY
     Dosage: 75 MG, DAILY

REACTIONS (2)
  - DIPLOPIA [None]
  - EXPIRED DRUG ADMINISTERED [None]
